FAERS Safety Report 8616237-1 (Version None)
Quarter: 2012Q3

REPORT INFORMATION
  Report Type: 
  Country: None (occurrence: None)
  Receive Date: 20120823
  Receipt Date: 20120815
  Transmission Date: 20120928
  Serious: Yes (Hospitalization)
  Sender: FDA-Public Use
  Company Number: FI-ROCHE-1102581

PATIENT
  Age: 47 Year
  Sex: Female

DRUGS (2)
  1. DEXAMETHASONE [Concomitant]
     Indication: IMMUNOSUPPRESSANT DRUG THERAPY
     Dates: start: 20120511, end: 20120618
  2. ZELBORAF [Suspect]
     Indication: METASTATIC MALIGNANT MELANOMA
     Dates: start: 20120516

REACTIONS (1)
  - PNEUMOCYSTIS JIROVECI PNEUMONIA [None]
